FAERS Safety Report 17988281 (Version 1)
Quarter: 2020Q3

REPORT INFORMATION
  Report Type: Spontaneous
  Country: US (occurrence: US)
  Receive Date: 20200706
  Receipt Date: 20200706
  Transmission Date: 20201103
  Serious: No
  Sender: FDA-Public Use
  Company Number: None

PATIENT
  Sex: Female

DRUGS (1)
  1. OTEZLA [Suspect]
     Active Substance: APREMILAST
     Indication: PSORIATIC ARTHROPATHY
     Dosage: ?          OTHER DOSE:10/20/30MG;OTHER FREQUENCY:TITRATION;?
     Route: 048
     Dates: start: 20200616

REACTIONS (3)
  - Nausea [None]
  - Dizziness [None]
  - Diarrhoea [None]
